FAERS Safety Report 9553093 (Version 1)
Quarter: 2013Q3

REPORT INFORMATION
  Report Type: Spontaneous
  Country: SG (occurrence: SG)
  Receive Date: 20130925
  Receipt Date: 20130925
  Transmission Date: 20140515
  Serious: Yes (Hospitalization)
  Sender: FDA-Public Use
  Company Number: SG-ABBVIE-13P-141-1149195-00

PATIENT
  Age: 20 Year
  Sex: Male

DRUGS (3)
  1. HUMIRA [Suspect]
     Indication: HIDRADENITIS
     Dosage: WEEK 0
  2. HUMIRA [Suspect]
     Dosage: DAY 7 WEEK 1
  3. HUMIRA [Suspect]
     Dosage: WEEK 3 DAY 21

REACTIONS (2)
  - Pyrexia [Recovered/Resolved]
  - Infection [Recovering/Resolving]
